FAERS Safety Report 7252025-9 (Version None)
Quarter: 2011Q1

REPORT INFORMATION
  Report Type: 
  Country: None (occurrence: None)
  Receive Date: 20110128
  Receipt Date: 20100108
  Transmission Date: 20110831
  Serious: No
  Sender: FDA-Public Use
  Company Number: US-ABBOTT-10P-163-0619042-00

PATIENT
  Sex: Male

DRUGS (2)
  1. TOPICAL CREAMS [Concomitant]
     Indication: PSORIATIC ARTHROPATHY
     Route: 061
  2. HUMIRA [Suspect]
     Indication: PSORIATIC ARTHROPATHY
     Dates: start: 20080101, end: 20100103

REACTIONS (1)
  - ARTHRALGIA [None]
